FAERS Safety Report 5211943-3 (Version None)
Quarter: 2007Q1

REPORT INFORMATION
  Report Type: 
  Country: None (occurrence: None)
  Receive Date: 20070116
  Receipt Date: 20070116
  Transmission Date: 20070707
  Serious: Yes (Hospitalization)
  Sender: FDA-Public Use
  Company Number: None

PATIENT
  Sex: Male
  Weight: 136.9863 kg

DRUGS (1)
  1. GENTAMICIN SULFATE [Suspect]
     Indication: OSTEOMYELITIS
     Dosage: 350 MG QD IV
     Route: 042
     Dates: start: 20061121, end: 20070110

REACTIONS (3)
  - DRUG TOXICITY [None]
  - RENAL FAILURE ACUTE [None]
  - TINNITUS [None]
